FAERS Safety Report 10031849 (Version 1)
Quarter: 2014Q1

REPORT INFORMATION
  Report Type: Spontaneous
  Country: US (occurrence: US)
  Receive Date: 20140324
  Receipt Date: 20140324
  Transmission Date: 20141002
  Serious: No
  Sender: FDA-Public Use
  Company Number: US-BAYER-2014-044153

PATIENT
  Age: 70 Year
  Sex: Female
  Weight: 74.83 kg

DRUGS (3)
  1. ALEVE CAPLET [Suspect]
     Indication: MUSCULOSKELETAL PAIN
     Dosage: 1 DF, UNK
     Route: 048
     Dates: start: 2012
  2. SYNTHROID [Concomitant]
  3. CYMBALTA [Concomitant]

REACTIONS (1)
  - Urticaria [Recovered/Resolved]
